FAERS Safety Report 20811088 (Version 1)
Quarter: 2022Q2

REPORT INFORMATION
  Report Type: Spontaneous
  Country: US (occurrence: US)
  Receive Date: 20220510
  Receipt Date: 20220510
  Transmission Date: 20220721
  Serious: No
  Sender: FDA-Public Use
  Company Number: US-Vifor (International) Inc.-VIT-2022-02581

PATIENT
  Sex: Male

DRUGS (2)
  1. VELTASSA [Suspect]
     Active Substance: PATIROMER
     Indication: Product used for unknown indication
     Route: 048
  2. VELTASSA [Suspect]
     Active Substance: PATIROMER
     Dosage: TWO 8.4 GRAMS PACKETS ONCE DAILY
     Route: 048

REACTIONS (1)
  - Diarrhoea [Unknown]
